FAERS Safety Report 13138719 (Version 2)
Quarter: 2017Q1

REPORT INFORMATION
  Report Type: Spontaneous
  Country: US (occurrence: US)
  Receive Date: 20170123
  Receipt Date: 20170224
  Transmission Date: 20170428
  Serious: Yes (Other)
  Sender: FDA-Public Use
  Company Number: US-PFIZER INC-2017020009

PATIENT
  Age: 67 Year
  Sex: Female
  Weight: 88.89 kg

DRUGS (16)
  1. COENZYME [Concomitant]
     Active Substance: UBIDECARENONE
     Dosage: 1 DF, DAILY
     Dates: start: 20160908
  2. HYDROCHLOROTHIAZIDE. [Concomitant]
     Active Substance: HYDROCHLOROTHIAZIDE
     Dosage: 12.5 MG, DAILY
     Dates: start: 20160908
  3. VITAMIN D [Concomitant]
     Active Substance: CHOLECALCIFEROL
     Dosage: 2000 UI 1 DAILY
     Dates: start: 20160908
  4. ZOLEDRONIC ACID [Concomitant]
     Active Substance: ZOLEDRONIC ACID
     Dosage: 4 MG/5 ML IV SOLUTION 1 ML ONCE A MONTH (INFUSE 4 MG IV Q MONTH)
     Route: 042
     Dates: start: 20140122
  5. ZOMETA [Suspect]
     Active Substance: ZOLEDRONIC ACID
     Dosage: 4 MG/5 ML INTRAVENOUS SOLUTION, 1ML ONCE A MONTH INFUSE 4MG IV Q MONTH
     Route: 042
     Dates: start: 20140122
  6. TURMERIC [Concomitant]
     Active Substance: TURMERIC
     Dosage: 201 MG, DAILY
     Dates: start: 20160908
  7. IBRANCE [Suspect]
     Active Substance: PALBOCICLIB
     Indication: BREAST CANCER METASTATIC
     Dosage: 125 MG, CYCLIC, 1 TABLET DAILY ON DAYS 1-21 DAYS Q 28 DAYS)
     Dates: start: 20160920
  8. XGEVA [Suspect]
     Active Substance: DENOSUMAB
     Indication: BREAST CANCER METASTATIC
     Dosage: UNK
  9. ZOMETA [Suspect]
     Active Substance: ZOLEDRONIC ACID
     Dosage: UNK
     Dates: start: 201503
  10. IBRANCE [Suspect]
     Active Substance: PALBOCICLIB
     Dosage: 125 MG, AS NEEDED, (1 TABLET AS DIRECT 1 TAB DAILY DAY 1-21 DAYS Q 28 DAYS)
  11. ZOMETA [Suspect]
     Active Substance: ZOLEDRONIC ACID
     Dosage: 4 MG/5 ML INTRAVENOUS SOLUTION, 1ML ONCE A MONTH INFUSE 3.3 MG IV Q MONTH
     Route: 042
     Dates: start: 20151211
  12. LETROZOLE. [Concomitant]
     Active Substance: LETROZOLE
     Dosage: 2.5 MG, DAILY
     Dates: start: 20140121, end: 20160908
  13. IBRANCE [Suspect]
     Active Substance: PALBOCICLIB
     Dosage: UNK
     Dates: start: 20160920
  14. IBRANCE [Suspect]
     Active Substance: PALBOCICLIB
     Dosage: 120 MG, DAILY
  15. FASLODEX [Suspect]
     Active Substance: FULVESTRANT
     Indication: BREAST CANCER METASTATIC
     Dosage: 500 MG, UNK
     Route: 030
     Dates: start: 20160921
  16. LISINOPRIL. [Concomitant]
     Active Substance: LISINOPRIL
     Dosage: 20 MG, DAILY
     Dates: start: 20160908

REACTIONS (8)
  - Fatigue [Unknown]
  - Dyspepsia [Unknown]
  - Weight increased [Recovered/Resolved]
  - Reflux gastritis [Unknown]
  - Bone pain [Recovering/Resolving]
  - Anxiety [Unknown]
  - Neutropenia [Unknown]
  - Asthenia [Unknown]
